FAERS Safety Report 9249056 (Version 1)
Quarter: 2013Q2

REPORT INFORMATION
  Report Type: Spontaneous
  Country: US (occurrence: US)
  Receive Date: 20130423
  Receipt Date: 20130423
  Transmission Date: 20140414
  Serious: Yes (Other)
  Sender: FDA-Public Use
  Company Number: US-ACTAVIS-2013-06657

PATIENT
  Sex: Female
  Weight: 52 kg

DRUGS (1)
  1. OXYCODONE HYDROCHLORIDE (ATLLC) [Suspect]
     Indication: PAIN
     Dosage: 30 MG, QID
     Route: 048
     Dates: start: 201204, end: 20130314

REACTIONS (3)
  - Withdrawal syndrome [Not Recovered/Not Resolved]
  - Dry skin [Recovered/Resolved]
  - Skin wrinkling [Recovered/Resolved]
